FAERS Safety Report 25011044 (Version 1)
Quarter: 2025Q1

REPORT INFORMATION
  Report Type: Spontaneous
  Country: CA (occurrence: CA)
  Receive Date: 20250225
  Receipt Date: 20250225
  Transmission Date: 20250409
  Serious: Yes (Other)
  Sender: Haleon PLC
  Company Number: CA-HALEON-2229964

PATIENT
  Age: 51 Year
  Sex: Female
  Weight: 106 kg

DRUGS (1)
  1. FLONASE ALLERGY RELIEF [Suspect]
     Active Substance: FLUTICASONE PROPIONATE
     Indication: Seasonal allergy
     Dosage: ROUTE OF ADMINISTRATION: INTRA-NASAL, DOSE FORM: SPRAY METERED DOSE

REACTIONS (1)
  - Urticaria [Not Recovered/Not Resolved]
